FAERS Safety Report 25235518 (Version 1)
Quarter: 2025Q2

REPORT INFORMATION
  Report Type: Spontaneous
  Country: US (occurrence: US)
  Receive Date: 20250424
  Receipt Date: 20250424
  Transmission Date: 20250717
  Serious: Yes (Other)
  Sender: PFIZER
  Company Number: US-PFIZER INC-202500085621

PATIENT
  Age: 68 Year
  Sex: Male

DRUGS (8)
  1. INLYTA [Suspect]
     Active Substance: AXITINIB
     Dosage: 5MG TABLET TAKE 1 TABLET BY MOUTH IN THE MORNING AND 1 TABLET BEFORE BEDTIME
     Route: 048
     Dates: start: 20241212, end: 20250410
  2. OMEPRAZOLE [Concomitant]
     Active Substance: OMEPRAZOLE
  3. BRILINTA [Concomitant]
     Active Substance: TICAGRELOR
  4. ASPIRIN [Concomitant]
     Active Substance: ASPIRIN
  5. FERROUS SULFATE [Concomitant]
     Active Substance: FERROUS SULFATE
  6. METOPROLOL SUCCINATE [Concomitant]
     Active Substance: METOPROLOL SUCCINATE
  7. LIPITOR [Concomitant]
     Active Substance: ATORVASTATIN CALCIUM
  8. LISINOPRIL [Concomitant]
     Active Substance: LISINOPRIL

REACTIONS (4)
  - Malignant neoplasm progression [Not Recovered/Not Resolved]
  - Thermal burn [Not Recovered/Not Resolved]
  - Second primary malignancy [Not Recovered/Not Resolved]
  - Skin cancer [Not Recovered/Not Resolved]
